FAERS Safety Report 7237708-9 (Version None)
Quarter: 2011Q1

REPORT INFORMATION
  Report Type: 
  Country: None (occurrence: None)
  Receive Date: 20110118
  Receipt Date: 20110103
  Transmission Date: 20110831
  Serious: Yes (Other)
  Sender: FDA-Public Use
  Company Number: ACO_21288_2011

PATIENT
  Age: 56 Year
  Sex: Male
  Weight: 76.1 kg

DRUGS (3)
  1. AMPYRA [Suspect]
  2. AMPYRA [Suspect]
     Indication: GAIT DISTURBANCE
     Dosage: 10 MG, BID, ORAL
     Route: 048
     Dates: start: 20100101
  3. NALTREXONE HYDROCHLORIDE [Concomitant]

REACTIONS (4)
  - DISORIENTATION [None]
  - RESPIRATORY DISORDER [None]
  - CONVULSION [None]
  - INAPPROPRIATE SCHEDULE OF DRUG ADMINISTRATION [None]
